FAERS Safety Report 13336800 (Version 3)
Quarter: 2018Q1

REPORT INFORMATION
  Report Type: Spontaneous
  Country: US (occurrence: US)
  Receive Date: 20170314
  Receipt Date: 20180220
  Transmission Date: 20180508
  Serious: No
  Sender: FDA-Public Use
  Company Number: US-JAZZ-2017-US-002674

PATIENT
  Sex: Female

DRUGS (32)
  1. XYREM [Suspect]
     Active Substance: SODIUM OXYBATE
     Dosage: 4.5G, BID
     Route: 048
     Dates: start: 201702
  2. DALMANE [Concomitant]
     Active Substance: FLURAZEPAM HYDROCHLORIDE
  3. LACTULOSE. [Concomitant]
     Active Substance: LACTULOSE
  4. MOBIC [Concomitant]
     Active Substance: MELOXICAM
  5. NATURE-THROID [Concomitant]
     Active Substance: THYROID, PORCINE
  6. ASPIRIN 81 [Concomitant]
     Active Substance: ASPIRIN
  7. MSM [Concomitant]
     Active Substance: DIMETHYL SULFONE
  8. CYANOCOBALAMIN. [Concomitant]
     Active Substance: CYANOCOBALAMIN
  9. DICLOFENAC [Concomitant]
     Active Substance: DICLOFENAC
  10. ADENOSINE. [Concomitant]
     Active Substance: ADENOSINE
  11. STRATTERA [Concomitant]
     Active Substance: ATOMOXETINE HYDROCHLORIDE
  12. HORIZANT [Concomitant]
     Active Substance: GABAPENTIN ENACARBIL
  13. LAMICTAL [Concomitant]
     Active Substance: LAMOTRIGINE
  14. IBUPROFEN. [Concomitant]
     Active Substance: IBUPROFEN
  15. PROGESTERONE. [Concomitant]
     Active Substance: PROGESTERONE
  16. RITALIN [Concomitant]
     Active Substance: METHYLPHENIDATE HYDROCHLORIDE
  17. ESTRONE [Concomitant]
     Active Substance: ESTRONE
  18. ACEBUTOLOL [Concomitant]
     Active Substance: ACEBUTOLOL
  19. ERGOCALCIFEROL. [Concomitant]
     Active Substance: ERGOCALCIFEROL
  20. SAVELLA [Concomitant]
     Active Substance: MILNACIPRAN HYDROCHLORIDE
  21. DOXEPIN HYDROCHLORIDE. [Concomitant]
     Active Substance: DOXEPIN HYDROCHLORIDE
  22. XYREM [Suspect]
     Active Substance: SODIUM OXYBATE
     Indication: NARCOLEPSY
     Dosage: 3G, BID
     Route: 048
     Dates: start: 201407, end: 2014
  23. LOSARTAN POTASSIUM. [Concomitant]
     Active Substance: LOSARTAN POTASSIUM
  24. NALTREXONE [Concomitant]
     Active Substance: NALTREXONE
  25. TESTOSTERONE. [Concomitant]
     Active Substance: TESTOSTERONE
  26. VYVANSE [Concomitant]
     Active Substance: LISDEXAMFETAMINE DIMESYLATE
  27. XYREM [Suspect]
     Active Substance: SODIUM OXYBATE
     Indication: CATAPLEXY
     Dosage: DOSE ADJUSTMENT
     Route: 048
     Dates: start: 201408, end: 2017
  28. XANAX [Concomitant]
     Active Substance: ALPRAZOLAM
  29. ADDERALL [Concomitant]
     Active Substance: AMPHETAMINE ASPARTATE\AMPHETAMINE SULFATE\DEXTROAMPHETAMINE SACCHARATE\DEXTROAMPHETAMINE SULFATE
  30. SYNTHROID [Concomitant]
     Active Substance: LEVOTHYROXINE SODIUM
  31. FAMOTIDINE. [Concomitant]
     Active Substance: FAMOTIDINE
  32. CALCIUM CARBONATE. [Concomitant]
     Active Substance: CALCIUM CARBONATE

REACTIONS (2)
  - Disturbance in attention [Unknown]
  - Drug ineffective [Unknown]
